FAERS Safety Report 10212309 (Version 1)
Quarter: 2014Q2

REPORT INFORMATION
  Report Type: Spontaneous
  Country: US (occurrence: US)
  Receive Date: 20140602
  Receipt Date: 20140602
  Transmission Date: 20141212
  Serious: Yes (Hospitalization)
  Sender: FDA-Public Use
  Company Number: US-009507513-1405USA014913

PATIENT
  Age: 61 Year
  Sex: Male
  Weight: 80 kg

DRUGS (7)
  1. MIRALAX [Suspect]
     Indication: CONSTIPATION
     Dosage: 1 DF, PRN
     Route: 048
     Dates: start: 20120821, end: 20120822
  2. SENNA [Suspect]
     Indication: CONSTIPATION
     Dosage: 50 MG, 1-2 TIMES PER DAY
     Route: 048
     Dates: start: 20120821, end: 20120822
  3. PACLITAXEL [Concomitant]
     Indication: NON-SMALL CELL LUNG CANCER
     Dosage: UNK, UNKNOWN
     Route: 048
     Dates: start: 20120817
  4. RANITIDINE [Concomitant]
     Indication: GASTROOESOPHAGEAL REFLUX DISEASE
     Dosage: UNK, UNKNOWN
     Route: 048
     Dates: start: 20120817, end: 20120817
  5. ONDANSETRON [Concomitant]
     Indication: NAUSEA
     Dosage: UNK, UNKNOWN
     Dates: start: 20120817
  6. DEXAMETHASONE [Concomitant]
     Indication: NAUSEA
     Dosage: UNK, UNKNOWN
     Dates: start: 20120817
  7. DIPHENHYDRAMINE HYDROCHLORIDE [Concomitant]
     Indication: PROPHYLAXIS
     Dosage: UNK, UNKNOWN
     Route: 048
     Dates: start: 20120817, end: 20120817

REACTIONS (3)
  - Diarrhoea [Recovered/Resolved]
  - Abdominal pain [Recovered/Resolved]
  - Dyspnoea [Unknown]
